FAERS Safety Report 10866175 (Version 1)
Quarter: 2015Q1

REPORT INFORMATION
  Report Type: Spontaneous
  Country: IT (occurrence: None)
  Receive Date: 20150219
  Receipt Date: 20150219
  Transmission Date: 20150721
  Serious: No
  Sender: FDA-Public Use
  Company Number: 2015HINLIT0122

PATIENT
  Sex: Female

DRUGS (3)
  1. STAVUDINE. [Suspect]
     Active Substance: STAVUDINE
     Indication: HIV INFECTION
     Dosage: 30 MG, TWICE DAILY, UNKNOWN
  2. NEVIRAPINE. [Suspect]
     Active Substance: NEVIRAPINE
     Indication: HIV INFECTION
     Dosage: 200 MG, TWICE DAILY, UNKNOWN
  3. ZIDOVUDINE (ZIEDOVUDINE) UNKNOWN [Suspect]
     Active Substance: ZIDOVUDINE
     Indication: HIV INFECTION

REACTIONS (3)
  - Alanine aminotransferase increased [None]
  - Hepatotoxicity [None]
  - Maternal exposure during pregnancy [None]
